FAERS Safety Report 8521528-9 (Version None)
Quarter: 2012Q3

REPORT INFORMATION
  Report Type: 
  Country: None (occurrence: None)
  Receive Date: 20120719
  Receipt Date: 20120711
  Transmission Date: 20120928
  Serious: Yes (Hospitalization)
  Sender: FDA-Public Use
  Company Number: PHHY2012BR049891

PATIENT
  Sex: Male

DRUGS (6)
  1. AMLODOPINE BESYLATE AND VALSARTAN [Suspect]
     Indication: BLOOD PRESSURE INCREASED
     Dosage: 1 DF (80 MG VALS AND 5 MG AMLO), DAILY
     Route: 048
  2. CLONAZEPAM [Concomitant]
     Indication: SLEEP DISORDER
     Dosage: 1 DF AT NIGHT
     Route: 048
  3. HYDROCHLOROTHIAZIDE [Concomitant]
     Indication: MICTURITION DISORDER
     Dosage: 1 DF, DAILY
     Route: 048
  4. DIOVAN [Suspect]
     Indication: BLOOD PRESSURE INCREASED
     Dosage: UNK UKN, UNK
     Route: 048
  5. DIOVAN [Suspect]
     Dosage: 1 DF, A DAY (160 MG)
     Route: 048
  6. ALENIA [Concomitant]
     Indication: BRONCHIAL DISORDER
     Dosage: 1 DF (400 MCG FORMOTEROL AND 12 MCG BUDESONIDE), BID

REACTIONS (3)
  - HEADACHE [None]
  - HYPERTENSION [None]
  - OEDEMA PERIPHERAL [None]
